FAERS Safety Report 11619711 (Version 1)
Quarter: 2015Q4

REPORT INFORMATION
  Report Type: Spontaneous
  Country: US (occurrence: FR)
  Receive Date: 20151012
  Receipt Date: 20151012
  Transmission Date: 20160304
  Serious: Yes (Hospitalization)
  Sender: FDA-Public Use
  Company Number: FR-FRI-1000080190

PATIENT
  Age: 67 Year
  Sex: Male

DRUGS (8)
  1. CEFTAROLINE FOSAMIL [Suspect]
     Active Substance: CEFTAROLINE FOSAMIL
     Route: 042
     Dates: start: 20150902, end: 20150906
  2. RIFAMPICINE [Suspect]
     Active Substance: RIFAMPIN
     Indication: SEPSIS
     Route: 065
     Dates: start: 20150828, end: 20150904
  3. VANCOMYCIN [Suspect]
     Active Substance: VANCOMYCIN
     Route: 042
     Dates: start: 20150819, end: 20150902
  4. INEXIUM [Concomitant]
     Active Substance: ESOMEPRAZOLE
  5. EUCREAS [Concomitant]
     Active Substance: METFORMIN HYDROCHLORIDE\VILDAGLIPTIN
     Indication: TYPE 1 DIABETES MELLITUS
  6. CERNEVIT [Concomitant]
     Active Substance: VITAMINS
  7. LOVENOX [Concomitant]
     Active Substance: ENOXAPARIN SODIUM
  8. DECAN [Concomitant]
     Active Substance: DEXAMETHASONE

REACTIONS (2)
  - Cholelithiasis [Unknown]
  - Hepatocellular injury [Unknown]

NARRATIVE: CASE EVENT DATE: 20150902
